FAERS Safety Report 18307519 (Version 4)
Quarter: 2023Q1

REPORT INFORMATION
  Report Type: Spontaneous
  Country: GB (occurrence: GB)
  Receive Date: 20200924
  Receipt Date: 20230109
  Transmission Date: 20230418
  Serious: Yes (Life-Threatening, Other)
  Sender: FDA-Public Use
  Company Number: GB-BAXTER-2020BAX017656

PATIENT
  Age: 36 Year
  Sex: Female
  Weight: 89 kg

DRUGS (26)
  1. ONDANSETRON [Suspect]
     Active Substance: ONDANSETRON
     Indication: Supportive care
     Dosage: 16 MILLIGRAM, QD (BD FOR 3 DAYS)
     Route: 065
     Dates: start: 20200824, end: 20200826
  2. ONDANSETRON [Suspect]
     Active Substance: ONDANSETRON
     Dosage: 8 MILLIGRAM, BID(8 MG, BID, 2 MG/ML (16 MG, QD, BD FOR 3 DAYS)
     Route: 065
     Dates: start: 20200824, end: 20200826
  3. CISPLATIN [Suspect]
     Active Substance: CISPLATIN
     Indication: Neoplasm recurrence
     Dosage: UNK
     Route: 065
     Dates: start: 20200824, end: 20200824
  4. CISPLATIN [Suspect]
     Active Substance: CISPLATIN
     Indication: Germ cell neoplasm
     Dosage: UNK
     Route: 065
  5. CISPLATIN [Suspect]
     Active Substance: CISPLATIN
     Dosage: UNK, PRN(IN SODIUM CHLORIDE 0.9 PERCENT)
     Route: 065
     Dates: start: 20200824, end: 20200824
  6. METFORMIN [Suspect]
     Active Substance: METFORMIN HYDROCHLORIDE
     Indication: Diabetes mellitus
     Dosage: 500 MILLIGRAM, QD
     Route: 065
     Dates: start: 20200824
  7. APREPITANT [Suspect]
     Active Substance: APREPITANT
     Indication: Supportive care
     Dosage: 125 MILLIGRAM (D1)
     Route: 065
     Dates: start: 20200824
  8. APREPITANT [Suspect]
     Active Substance: APREPITANT
     Dosage: 80 MILLIGRAM D2
     Route: 065
     Dates: start: 20200825
  9. APREPITANT [Suspect]
     Active Substance: APREPITANT
     Dosage: 80 MILLIGRAM D3
     Route: 065
     Dates: start: 20200826, end: 20200826
  10. APREPITANT [Suspect]
     Active Substance: APREPITANT
     Dosage: 80 MILLIGRAM, PRN(80 MG (D2), PRN)
     Route: 065
     Dates: start: 20200825
  11. APREPITANT [Suspect]
     Active Substance: APREPITANT
     Dosage: 125 MILLIGRAM, PRN(125 MG (D1), PRN)
     Route: 065
     Dates: start: 20200824
  12. APREPITANT [Suspect]
     Active Substance: APREPITANT
     Dosage: 80 MILLIGRAM, PRN(80 MG (D3), PRN)
     Route: 065
     Dates: start: 20200826, end: 20200826
  13. SODIUM CHLORIDE [Suspect]
     Active Substance: SODIUM CHLORIDE
     Indication: Medication dilution
     Dosage: UNK IN CISPLATIN
     Route: 065
     Dates: start: 20200824, end: 20200824
  14. SODIUM CHLORIDE [Suspect]
     Active Substance: SODIUM CHLORIDE
     Indication: Medication dilution
     Dosage: 2 DOSAGE FORM, QD IN ETOPOSIDE
     Route: 042
     Dates: start: 20200824, end: 20200824
  15. SODIUM CHLORIDE [Suspect]
     Active Substance: SODIUM CHLORIDE
     Dosage: 2 DOSAGE FORM, QD IN ETOPOSIDE
     Route: 042
     Dates: start: 20200824, end: 20200824
  16. SODIUM CHLORIDE [Suspect]
     Active Substance: SODIUM CHLORIDE
     Indication: Medication dilution
     Dosage: 2 DOSAGE FORM, QD(2 DF, QD, (IN ETOPOSIDE)(FORMULATION: INTRAVENOUS INFUSION BP)
     Route: 065
     Dates: start: 20200824, end: 20200824
  17. SODIUM CHLORIDE [Suspect]
     Active Substance: SODIUM CHLORIDE
     Indication: Medication dilution
     Dosage: UNK, PRN(IN CISPLATIN; AS NECESSARY)
     Route: 065
     Dates: start: 20200824, end: 20200824
  18. DALTEPARIN [Suspect]
     Active Substance: DALTEPARIN
     Indication: Product used for unknown indication
     Dosage: 18000 INTERNATIONAL UNIT, QD
     Route: 065
     Dates: start: 20200824
  19. DEXAMETHASONE [Suspect]
     Active Substance: DEXAMETHASONE
     Indication: Supportive care
     Dosage: 8 MILLIGRAM, QD BD FOR 3 DAYS
     Route: 065
     Dates: start: 20200824, end: 20200826
  20. ETOPOSIDE [Suspect]
     Active Substance: ETOPOSIDE
     Indication: Neoplasm recurrence
     Dosage: 720 MILLIGRAM, QD
     Route: 042
     Dates: start: 20200824, end: 20200824
  21. ETOPOSIDE [Suspect]
     Active Substance: ETOPOSIDE
     Dosage: 720 MILLIGRAM, QD
     Route: 042
     Dates: start: 20200824, end: 20200824
  22. DOMPERIDONE [Suspect]
     Active Substance: DOMPERIDONE
     Indication: Supportive care
     Dosage: 30 MILLIGRAM, QD PRN
     Route: 065
     Dates: start: 20200824
  23. DOMPERIDONE [Suspect]
     Active Substance: DOMPERIDONE
     Dosage: 10 MILLIGRAM, TID(10 MG, TID, PRN (30 MG, QD)
     Route: 065
     Dates: start: 20200824
  24. ETOPOSIDE [Suspect]
     Active Substance: ETOPOSIDE
     Indication: Germ cell neoplasm
     Dosage: UNK
     Route: 065
  25. ETOPOSIDE [Suspect]
     Active Substance: ETOPOSIDE
     Indication: Neoplasm recurrence
     Dosage: UNK
     Route: 065
  26. ETOPOSIDE [Suspect]
     Active Substance: ETOPOSIDE
     Dosage: 360 MILLIGRAM, BID(360 MILLIGRAM,BID, (720 MG, QD))
     Route: 065
     Dates: start: 20200824, end: 20200824

REACTIONS (1)
  - Anaphylactic reaction [Recovered/Resolved]

NARRATIVE: CASE EVENT DATE: 20200824
